FAERS Safety Report 23040595 (Version 1)
Quarter: 2023Q4

REPORT INFORMATION
  Report Type: Spontaneous
  Country: GB (occurrence: GB)
  Receive Date: 20231006
  Receipt Date: 20231006
  Transmission Date: 20240109
  Serious: Yes (Death)
  Sender: FDA-Public Use
  Company Number: GB-ETHYPHARM-2023002387

PATIENT
  Age: 64 Year
  Sex: Male

DRUGS (3)
  1. FLUOXETINE [Suspect]
     Active Substance: FLUOXETINE HYDROCHLORIDE
     Indication: Product used for unknown indication
     Dosage: PRESCRIPTION DOSE; ;
     Route: 065
  2. MORPHINE [Suspect]
     Active Substance: MORPHINE
     Indication: Back pain
     Dosage: STRENGTH: 10MG/5ML
     Route: 065
  3. ALCOHOL [Suspect]
     Active Substance: ALCOHOL
     Indication: Product used for unknown indication
     Dosage: DRANK A MINIMAL AMOUNT OF ALCOHOL; ;
     Route: 048

REACTIONS (1)
  - Toxicity to various agents [Fatal]
